FAERS Safety Report 18463199 (Version 1)
Quarter: 2020Q4

REPORT INFORMATION
  Report Type: Spontaneous
  Country: US (occurrence: US)
  Receive Date: 20201104
  Receipt Date: 20201104
  Transmission Date: 20210114
  Serious: Yes (Death)
  Sender: FDA-Public Use
  Company Number: US-PFIZER INC-2020427153

PATIENT
  Age: 77 Year
  Sex: Male
  Weight: 66.22 kg

DRUGS (1)
  1. VYNDAMAX [Suspect]
     Active Substance: TAFAMIDIS
     Indication: CARDIAC AMYLOIDOSIS
     Dosage: 61 MG, 1X/DAY (61MG CAPSULE ONCE DAILY BY MOUTH)
     Route: 048
     Dates: start: 201911

REACTIONS (1)
  - Cardiac failure chronic [Fatal]
